FAERS Safety Report 8301061-X (Version None)
Quarter: 2012Q2

REPORT INFORMATION
  Report Type: 
  Country: None (occurrence: None)
  Receive Date: 20120420
  Receipt Date: 20120413
  Transmission Date: 20120825
  Serious: Yes (Hospitalization)
  Sender: FDA-Public Use
  Company Number: DE-B.I. PHARMACEUTICALS,INC./RIDGEFIELD-2012-DE-00769DE

PATIENT
  Sex: Female
  Weight: 75 kg

DRUGS (5)
  1. AGGRENOX [Suspect]
     Indication: CEREBROVASCULAR ACCIDENT PROPHYLAXIS
     Dosage: 400 MG
     Route: 048
     Dates: start: 19950101, end: 20120201
  2. VOTOM [Concomitant]
  3. OMEPRAZOLE [Concomitant]
  4. AGGRENOX [Suspect]
     Indication: TRANSIENT ISCHAEMIC ATTACK
  5. AMLODIPINE [Concomitant]

REACTIONS (5)
  - DIZZINESS [None]
  - NAUSEA [None]
  - GENERAL PHYSICAL HEALTH DETERIORATION [None]
  - MUSCLE SPASMS [None]
  - TREMOR [None]
